FAERS Safety Report 6718711-1 (Version None)
Quarter: 2010Q2

REPORT INFORMATION
  Report Type: 
  Country: None (occurrence: None)
  Receive Date: 20100505
  Receipt Date: 20100426
  Transmission Date: 20101027
  Serious: Yes (Disabling)
  Sender: FDA-Public Use
  Company Number: 2010SP023813

PATIENT
  Age: 55 Year
  Sex: Male
  Weight: 87 kg

DRUGS (5)
  1. DEXAMETHASONE [Suspect]
     Indication: MULTIPLE MYELOMA
     Dosage: 40 MG;
     Dates: start: 20091101, end: 20091201
  2. BORTEZOMIB [Suspect]
     Indication: MULTIPLE MYELOMA
     Dosage: 2.2 MG; 1.4 MG;
     Dates: start: 20071201, end: 20091101
  3. BORTEZOMIB [Suspect]
     Indication: MULTIPLE MYELOMA
     Dosage: 2.2 MG; 1.4 MG;
     Dates: start: 20091201
  4. REVLIMID [Suspect]
     Indication: MULTIPLE MYELOMA
     Dates: start: 20091101, end: 20091201
  5. REVLIMID [Suspect]
     Indication: MULTIPLE MYELOMA
     Dates: start: 20100201

REACTIONS (1)
  - NEUROPATHY PERIPHERAL [None]
